FAERS Safety Report 10729086 (Version 1)
Quarter: 2015Q1

REPORT INFORMATION
  Report Type: Report from Study
  Country: DE (occurrence: DE)
  Receive Date: 20150122
  Receipt Date: 20150122
  Transmission Date: 20150721
  Serious: Yes (Other)
  Sender: FDA-Public Use
  Company Number: DE-BAYER-2014-110556

PATIENT
  Age: 34 Year
  Sex: Female

DRUGS (3)
  1. BETAFERON [Suspect]
     Active Substance: INTERFERON BETA-1B
     Indication: MULTIPLE SCLEROSIS
     Dosage: 250 ?G, QOD
     Route: 058
     Dates: start: 20080325
  2. IBUPROFEN. [Suspect]
     Active Substance: IBUPROFEN
     Dosage: 400 MG, PRN
  3. BETAFERON [Suspect]
     Active Substance: INTERFERON BETA-1B
     Indication: MULTIPLE SCLEROSIS
     Dosage: UNK

REACTIONS (21)
  - Tremor [None]
  - Exposure during pregnancy [None]
  - Arthralgia [Not Recovered/Not Resolved]
  - Pruritus [None]
  - Drug hypersensitivity [None]
  - Hot flush [Not Recovered/Not Resolved]
  - Tremor [None]
  - Feeling cold [None]
  - Dyspnoea [None]
  - Nausea [None]
  - Inflammation [Unknown]
  - Injection site reaction [Not Recovered/Not Resolved]
  - Headache [None]
  - Erythema [None]
  - Disease progression [Unknown]
  - Hyperhidrosis [None]
  - Influenza like illness [Not Recovered/Not Resolved]
  - Chills [Not Recovered/Not Resolved]
  - Feeling hot [None]
  - Unevaluable event [None]
  - Muscle spasms [None]

NARRATIVE: CASE EVENT DATE: 20080325
